FAERS Safety Report 7914178-6 (Version None)
Quarter: 2011Q4

REPORT INFORMATION
  Report Type: 
  Country: None (occurrence: None)
  Receive Date: 20111115
  Receipt Date: 20111115
  Transmission Date: 20120403
  Serious: No
  Sender: FDA-Public Use
  Company Number: None

PATIENT
  Age: 38 Year
  Sex: Female
  Weight: 68.038 kg

DRUGS (2)
  1. LEVAQUIN [Suspect]
     Indication: SINUSITIS
     Dosage: 500MG
     Route: 048
     Dates: start: 20111028, end: 20111107
  2. LEVAQUIN [Concomitant]
     Dosage: 750MG
     Route: 048
     Dates: start: 20111112, end: 20111114

REACTIONS (2)
  - PAIN [None]
  - MYALGIA [None]
